FAERS Safety Report 18160949 (Version 1)
Quarter: 2020Q3

REPORT INFORMATION
  Report Type: Spontaneous
  Country: US (occurrence: IT)
  Receive Date: 20200817
  Receipt Date: 20200817
  Transmission Date: 20201103
  Serious: Yes (Other)
  Sender: FDA-Public Use
  Company Number: IT-BIOMARINAP-IT-2020-131666

PATIENT
  Age: 13 Year
  Sex: Male

DRUGS (1)
  1. ALDURAZYME [Suspect]
     Active Substance: LARONIDASE
     Indication: MUCOPOLYSACCHARIDOSIS I
     Dosage: 15 DOSAGE FORM, QW
     Route: 041
     Dates: start: 20141018, end: 20200804

REACTIONS (2)
  - Central venous catheterisation [Recovered/Resolved]
  - Vascular access site occlusion [Unknown]

NARRATIVE: CASE EVENT DATE: 20200729
